FAERS Safety Report 6908949-2 (Version None)
Quarter: 2010Q3

REPORT INFORMATION
  Report Type: 
  Country: None (occurrence: None)
  Receive Date: 20100805
  Receipt Date: 20100728
  Transmission Date: 20110219
  Serious: No
  Sender: FDA-Public Use
  Company Number: US-MYLANLABS-2010S1011601

PATIENT
  Age: 35 Year
  Sex: Female
  Weight: 104.33 kg

DRUGS (18)
  1. FENTANYL-100 [Suspect]
     Indication: ARTHRALGIA
     Dosage: CHANGED Q72H
     Route: 062
     Dates: start: 20090101
  2. FENTANYL-100 [Suspect]
     Dosage: CHANGED Q72H
     Route: 062
     Dates: start: 20090101
  3. FENTANYL-100 [Suspect]
     Indication: FIBROMYALGIA
     Dosage: CHANGED Q72H
     Route: 062
     Dates: start: 20090101
  4. FENTANYL-100 [Suspect]
     Indication: BACK PAIN
     Dosage: CHANGED Q72H
     Route: 062
     Dates: start: 20090101
  5. FENTANYL-100 [Suspect]
     Dosage: CHANGED Q72H
     Route: 062
     Dates: start: 20090101
  6. FENTANYL-100 [Suspect]
     Dosage: CHANGED Q72H
     Route: 062
     Dates: start: 20090101
  7. FENTANYL-100 [Suspect]
     Dosage: CHANGED Q72H
     Route: 062
     Dates: start: 20090101
  8. FENTANYL-100 [Suspect]
     Dosage: CHANGED Q72H
     Route: 062
     Dates: start: 20090101
  9. CYMBALTA [Concomitant]
     Indication: BIPOLAR DISORDER
     Route: 048
  10. XANAX [Concomitant]
     Indication: ANXIETY
     Route: 048
  11. LAMICTAL [Concomitant]
     Indication: BIPOLAR DISORDER
     Route: 048
  12. NORCO [Concomitant]
     Indication: ARTHRALGIA
     Route: 048
  13. XYREM [Concomitant]
     Indication: NARCOLEPSY
     Route: 048
  14. ADDERALL 10 [Concomitant]
     Indication: NARCOLEPSY
     Route: 048
  15. HYDROCODONE BITARTRATE AND ACETAMINOPHEN [Concomitant]
     Dosage: 7.5MG/325MG
     Route: 048
  16. LYRICA [Concomitant]
     Route: 048
  17. TOPIRAMATE [Concomitant]
     Route: 048
  18. HYDROCHLOROTHIAZIDE [Concomitant]

REACTIONS (4)
  - ARTHRALGIA [None]
  - DRUG INEFFECTIVE [None]
  - DRUG SCREEN NEGATIVE [None]
  - DRUG WITHDRAWAL SYNDROME [None]
